FAERS Safety Report 16226480 (Version 2)
Quarter: 2019Q2

REPORT INFORMATION
  Report Type: Spontaneous
  Country: JP (occurrence: JP)
  Receive Date: 20190423
  Receipt Date: 20190506
  Transmission Date: 20190711
  Serious: Yes (Other)
  Sender: FDA-Public Use
  Company Number: JP-BRISTOL-MYERS SQUIBB COMPANY-BMS-2019-039388

PATIENT
  Age: 30 Year
  Sex: Female

DRUGS (2)
  1. METGLUCO [Suspect]
     Active Substance: METFORMIN HYDROCHLORIDE
     Indication: POLYCYSTIC OVARIES
     Dosage: 500 MILLIGRAM, QD
     Route: 048
  2. CLOMID [Concomitant]
     Active Substance: CLOMIPHENE CITRATE
     Indication: OVULATION INDUCTION
     Dosage: 100 MILLIGRAM
     Route: 065

REACTIONS (3)
  - Maternal exposure during pregnancy [Unknown]
  - Vanishing twin syndrome [Unknown]
  - Twin pregnancy [Unknown]
